FAERS Safety Report 8473540-6 (Version None)
Quarter: 2012Q2

REPORT INFORMATION
  Report Type: 
  Country: None (occurrence: None)
  Receive Date: 20120628
  Receipt Date: 20120625
  Transmission Date: 20120825
  Serious: Yes (Death, Hospitalization, Other)
  Sender: FDA-Public Use
  Company Number: US-ASTRAZENECA-2011SE41545

PATIENT
  Age: 61 Year
  Sex: Female

DRUGS (75)
  1. NEXIUM [Suspect]
     Route: 048
     Dates: start: 20030522
  2. HYZAAR [Concomitant]
     Dosage: 50 / 12.5 MG QD
     Dates: start: 20060104
  3. XANAX [Concomitant]
  4. ALLOPREERINOL [Concomitant]
     Indication: GOUT
  5. CARISOPRODOL [Concomitant]
     Dates: start: 20030620
  6. ISOSORBIDE MONONITRATE [Concomitant]
  7. SPIRONOLACTONE [Concomitant]
  8. SPIRONOLACTONE [Concomitant]
     Dates: start: 20030423
  9. CLINDAMYCIN HCL [Concomitant]
  10. ASPIRIN [Concomitant]
     Dates: start: 20070119
  11. CENTRUM VITAMIN [Concomitant]
     Dates: start: 20070119
  12. RANITIDINE [Concomitant]
     Dates: start: 20090401, end: 20110901
  13. RAZADYNE [Concomitant]
     Indication: MEMORY IMPAIRMENT
  14. COZZAAR [Concomitant]
  15. CELEBREX [Concomitant]
     Dates: start: 20030618
  16. ALLEGRA [Concomitant]
     Dates: start: 20110112
  17. ASPIRIN [Concomitant]
     Dates: start: 20060104
  18. ZAROXOLYN [Concomitant]
     Dates: start: 20060104
  19. EVISSA [Concomitant]
  20. NEXIUM [Suspect]
     Indication: ABDOMINAL PAIN UPPER
     Route: 048
  21. NEXIUM [Suspect]
     Route: 048
     Dates: start: 20060104
  22. RAZADYNE [Concomitant]
     Dates: start: 20060104
  23. LOOASTATIN [Concomitant]
  24. PLAVIX [Concomitant]
     Indication: APOLIPOPROTEIN ABNORMAL
     Dosage: 1 PO Q DAY
     Route: 048
  25. AZITHORMYCIN [Concomitant]
  26. FUROSEMIDE [Concomitant]
  27. DIOUAN [Concomitant]
  28. LEVAQUIN [Concomitant]
     Dates: start: 20030606
  29. TORSEMIDE [Concomitant]
     Dates: start: 20070119
  30. ZAROXOLYN [Concomitant]
     Dosage: 5 MG PRN
     Dates: start: 20070119
  31. NEXIUM [Suspect]
     Indication: GASTROOESOPHAGEAL REFLUX DISEASE
     Route: 048
  32. POTASSIUM CL [Concomitant]
  33. XANAX [Concomitant]
     Dates: start: 20030620
  34. PRAUASTATIN SODIUM [Concomitant]
  35. AMITRIPTYLINE HCL [Concomitant]
  36. XANAX [Concomitant]
     Dosage: 0.5 MG 1/2 PRN
     Dates: start: 20070119
  37. GLIMEPIRIDE [Concomitant]
  38. TEMAZEPAM [Concomitant]
  39. AVANDIA [Concomitant]
     Dates: start: 20030620
  40. COLCHICINE [Concomitant]
     Dosage: 0.6 MG PRN
     Dates: start: 20060104
  41. ZAROXOLYN [Concomitant]
     Dates: start: 20030424
  42. ZAROXOLYN [Concomitant]
  43. NEXIUM [Suspect]
     Route: 048
     Dates: start: 20030501, end: 20090401
  44. NEXIUM [Suspect]
     Route: 048
     Dates: start: 20030522
  45. HYZAAR [Concomitant]
     Dosage: 50-12.5MG
     Dates: start: 20030423
  46. LUSPIRONE HCL [Concomitant]
  47. CARISOPRODOL [Concomitant]
  48. NITROGLYCERIN [Concomitant]
     Dosage: 0.4 MG PRN
     Dates: start: 20070119
  49. FLUTICASONE PROPIONATE [Concomitant]
     Dosage: 50 MCG
  50. PREDNISONE TAB [Concomitant]
  51. CORG [Concomitant]
  52. COREG [Concomitant]
     Dates: start: 20110112
  53. TOPROL-XL [Concomitant]
     Dates: start: 20060104
  54. DEMEDEX [Concomitant]
     Dosage: 2 PO Q AM
     Dates: start: 20060104
  55. NEXIUM [Suspect]
     Route: 048
     Dates: start: 20030501, end: 20090401
  56. NEXIUM [Suspect]
     Route: 048
     Dates: start: 20060104
  57. XANAX [Concomitant]
     Dosage: 5MG 1/2 TAB QPM
     Route: 048
     Dates: start: 20060104
  58. LYRICA [Concomitant]
  59. PLAVIX [Concomitant]
     Indication: CARDIAC DISORDER
     Dosage: 1 PO Q DAY
     Route: 048
  60. EUISTA [Concomitant]
     Indication: MENOPAUSE
  61. AMBIEN [Concomitant]
     Indication: SLEEP DISORDER
  62. CEFPROZIL [Concomitant]
  63. WARFARIN SODIUM [Concomitant]
  64. ENALAPRIL MALEATE [Concomitant]
  65. AMIODARONE HCL [Concomitant]
  66. PROMETHAZINE [Concomitant]
  67. AVAPRO [Concomitant]
     Dates: start: 20110112
  68. UNICEF [Concomitant]
     Dosage: 1 BID
     Route: 048
  69. NITROGLYCERIN [Concomitant]
     Indication: CARDIAC DISORDER
     Dates: start: 20030520
  70. SPIRIUA [Concomitant]
     Dosage: 18 MCG
  71. CEFADROXIL [Concomitant]
  72. ALTACE [Concomitant]
  73. HYDROCOONE/APAP [Concomitant]
     Indication: PAIN
     Dosage: 7.5/750
  74. ZOCOR [Concomitant]
     Dates: start: 20060104
  75. NEURONTIN [Concomitant]
     Dates: start: 20060104

REACTIONS (13)
  - RIB FRACTURE [None]
  - FRACTURE [None]
  - UPPER LIMB FRACTURE [None]
  - RENAL FAILURE CHRONIC [None]
  - ISCHAEMIC CARDIOMYOPATHY [None]
  - OSTEOPOROSIS [None]
  - LOWER LIMB FRACTURE [None]
  - CARDIAC FAILURE CONGESTIVE [None]
  - ARTERIOSCLEROSIS CORONARY ARTERY [None]
  - SUBENDOCARDIAL ISCHAEMIA [None]
  - CORONARY ARTERY DISEASE [None]
  - TYPE 2 DIABETES MELLITUS [None]
  - TYPE 1 DIABETES MELLITUS [None]
